FAERS Safety Report 5316189-6 (Version None)
Quarter: 2007Q2

REPORT INFORMATION
  Report Type: 
  Country: None (occurrence: None)
  Receive Date: 20070503
  Receipt Date: 20070424
  Transmission Date: 20071010
  Serious: Yes (Hospitalization)
  Sender: FDA-Public Use
  Company Number: FR-PFIZER INC-2007033534

PATIENT
  Sex: Female
  Weight: 55 kg

DRUGS (3)
  1. IRINOTECAN HCL [Suspect]
     Indication: COLON CANCER
     Route: 042
     Dates: start: 20070220, end: 20070306
  2. FLUOROURACIL [Suspect]
     Indication: COLON CANCER
     Route: 042
     Dates: start: 20070220, end: 20070306
  3. BEVACIZUMAB [Suspect]
     Indication: COLON CANCER
     Route: 042
     Dates: start: 20070220, end: 20070306

REACTIONS (4)
  - ABDOMINAL PAIN [None]
  - INTESTINAL PERFORATION [None]
  - PNEUMOPERITONEUM [None]
  - PYREXIA [None]
